FAERS Safety Report 17488821 (Version 2)
Quarter: 2020Q1

REPORT INFORMATION
  Report Type: Spontaneous
  Country: US (occurrence: US)
  Receive Date: 20200303
  Receipt Date: 20200327
  Transmission Date: 20200409
  Serious: No
  Sender: FDA-Public Use
  Company Number: US-ASTRAZENECA-2020SE23091

PATIENT
  Sex: Female
  Weight: 89.8 kg

DRUGS (2)
  1. VENTOLIN [Concomitant]
     Active Substance: ALBUTEROL SULFATE
     Dates: start: 1995
  2. SYMBICORT [Suspect]
     Active Substance: BUDESONIDE\FORMOTEROL FUMARATE DIHYDRATE
     Indication: HYPOPNOEA
     Dosage: SYBMICORT 160/4.5 MCG. TWO PUFFS TWICE EACH DAY
     Route: 055
     Dates: start: 2015

REACTIONS (4)
  - Wheezing [Recovered/Resolved]
  - Wrong technique in device usage process [Unknown]
  - Device malfunction [Unknown]
  - Drug delivery system malfunction [Unknown]
